FAERS Safety Report 7998576-0 (Version None)
Quarter: 2011Q4

REPORT INFORMATION
  Report Type: 
  Country: None (occurrence: None)
  Receive Date: 20111221
  Receipt Date: 20111212
  Transmission Date: 20120403
  Serious: Yes (Hospitalization)
  Sender: FDA-Public Use
  Company Number: US-ACTELION-A-US2011-57768

PATIENT

DRUGS (6)
  1. VIAGRA [Concomitant]
  2. LASIX [Concomitant]
  3. PULMICORT [Concomitant]
  4. TRACLEER [Suspect]
     Indication: PULMONARY ARTERIAL HYPERTENSION
     Dosage: 31.25 MG, BID
     Route: 048
     Dates: start: 20110203
  5. PULMOZYME [Concomitant]
  6. ATROVENT [Concomitant]

REACTIONS (4)
  - RESPIRATORY SYNCYTIAL VIRUS BRONCHIOLITIS [None]
  - RESPIRATORY DISTRESS [None]
  - PYREXIA [None]
  - PNEUMONIA [None]
